FAERS Safety Report 6451301-7 (Version None)
Quarter: 2009Q4

REPORT INFORMATION
  Report Type: 
  Country: None (occurrence: None)
  Receive Date: 20091118
  Receipt Date: 20090608
  Transmission Date: 20100525
  Serious: Yes (Hospitalization)
  Sender: FDA-Public Use
  Company Number: 2009BI017461

PATIENT
  Age: 49 Year
  Sex: Female
  Weight: 67.1324 kg

DRUGS (2)
  1. TYSABRI [Suspect]
     Indication: MULTIPLE SCLEROSIS
     Dosage: 300 MG;QM;IV
     Route: 042
     Dates: start: 20070601, end: 20090201
  2. PERCOCET [Concomitant]

REACTIONS (1)
  - HEADACHE [None]
